FAERS Safety Report 9716965 (Version 1)
Quarter: 2013Q4

REPORT INFORMATION
  Report Type: Spontaneous
  Country: US (occurrence: US)
  Receive Date: 20131127
  Receipt Date: 20131127
  Transmission Date: 20140711
  Serious: No
  Sender: FDA-Public Use
  Company Number: US-GILEAD-2009-0020151

PATIENT
  Age: 35 Year
  Sex: Female
  Weight: 68.04 kg

DRUGS (6)
  1. LETAIRIS [Suspect]
     Indication: PULMONARY ARTERIAL HYPERTENSION
     Route: 048
     Dates: start: 20080722
  2. PREDNISONE [Concomitant]
  3. LASIX [Concomitant]
  4. CARDIZEM LA [Concomitant]
  5. REMICADE [Concomitant]
  6. POTASSIUM [Concomitant]

REACTIONS (1)
  - Rash generalised [Unknown]
